FAERS Safety Report 13692857 (Version 1)
Quarter: 2017Q2

REPORT INFORMATION
  Report Type: Spontaneous
  Country: US (occurrence: US)
  Receive Date: 20170626
  Receipt Date: 20170626
  Transmission Date: 20170830
  Serious: Yes (Hospitalization)
  Sender: FDA-Public Use
  Company Number: None

PATIENT
  Age: 58 Year
  Sex: Male
  Weight: 76.2 kg

DRUGS (1)
  1. BUMETANIDE. [Suspect]
     Active Substance: BUMETANIDE
     Indication: CONGESTIVE CARDIOMYOPATHY
     Route: 048
     Dates: start: 20170221, end: 20170312

REACTIONS (8)
  - Hyponatraemia [None]
  - Fluid overload [None]
  - Hypotension [None]
  - Blood urea increased [None]
  - Dyspnoea [None]
  - Blood creatinine increased [None]
  - Cardiac failure [None]
  - Hypovolaemia [None]

NARRATIVE: CASE EVENT DATE: 20170312
